FAERS Safety Report 23034350 (Version 1)
Quarter: 2023Q4

REPORT INFORMATION
  Report Type: Spontaneous
  Country: NL (occurrence: NL)
  Receive Date: 20231005
  Receipt Date: 20231005
  Transmission Date: 20240109
  Serious: Yes (Hospitalization)
  Sender: FDA-Public Use
  Company Number: None

PATIENT
  Age: 74 Year
  Sex: Male
  Weight: 83 kg

DRUGS (6)
  1. SIMVASTATIN [Suspect]
     Active Substance: SIMVASTATIN
     Indication: Hypercholesterolaemia
     Dosage: 1X PER DAY 1 PIECE
     Dates: start: 20180125, end: 20230529
  2. COLCHICINE [Suspect]
     Active Substance: COLCHICINE
     Indication: Gout
     Dosage: 2X PER DAY 1 PIECE
     Dates: start: 20230522, end: 20230529
  3. ACETAMINOPHEN [Suspect]
     Active Substance: ACETAMINOPHEN
     Indication: Pain
     Dosage: 4X PER DAY 2 PIECE
     Dates: start: 20230515, end: 20230529
  4. POLYETHYLENE GLYCOLS [Concomitant]
     Active Substance: POLYETHYLENE GLYCOLS
     Dosage: POWDER FOR ORAL SOLUTION
  5. LOSARTAN POTASSIUM [Concomitant]
     Active Substance: LOSARTAN POTASSIUM
     Dosage: FILM-COATED TABLET, 50 MG (MILLIGRAM)
  6. NIFEDIPINE [Concomitant]
     Active Substance: NIFEDIPINE
     Dosage: REGULATED-RELEASE TABLET, 30 MG (MILLIGRAM)

REACTIONS (7)
  - Aspartate aminotransferase increased [Recovered/Resolved]
  - Hepatic enzyme abnormal [Recovered/Resolved]
  - Blood lactate dehydrogenase increased [Recovered/Resolved]
  - Blood alkaline phosphatase increased [Recovered/Resolved]
  - Alanine aminotransferase increased [Recovered/Resolved]
  - Gamma-glutamyltransferase increased [Recovered/Resolved]
  - Blood albumin increased [Recovered/Resolved]
